FAERS Safety Report 8399253-7 (Version None)
Quarter: 2012Q2

REPORT INFORMATION
  Report Type: 
  Country: None (occurrence: None)
  Receive Date: 20120531
  Receipt Date: 20120524
  Transmission Date: 20120825
  Serious: Yes (Death)
  Sender: FDA-Public Use
  Company Number: US-GLAXOSMITHKLINE-B0747669A

PATIENT
  Age: 70 Year
  Sex: Female

DRUGS (5)
  1. GLUCOTROL [Concomitant]
  2. ZOCOR [Concomitant]
  3. INSULIN [Concomitant]
  4. AVANDIA [Suspect]
     Indication: DIABETES MELLITUS
     Dosage: 4MG PER DAY
     Route: 048
     Dates: start: 20000630, end: 20030120
  5. TOPROL-XL [Concomitant]

REACTIONS (1)
  - CARDIO-RESPIRATORY ARREST [None]
